FAERS Safety Report 4449472-7 (Version None)
Quarter: 2004Q3

REPORT INFORMATION
  Report Type: 
  Country: None (occurrence: None)
  Receive Date: 20040910
  Receipt Date: 20040910
  Transmission Date: 20050211
  Serious: No
  Sender: FDA-Public Use
  Company Number: None

PATIENT
  Sex: Female
  Weight: 46.7205 kg

DRUGS (1)
  1. PROPOXYPHENE  APAP  100 / 325 [Suspect]
     Indication: BACK PAIN
     Dosage: 1 PO BED + EVERY 4HRS PRN
     Route: 048

REACTIONS (3)
  - DRUG INEFFECTIVE [None]
  - PAIN EXACERBATED [None]
  - PHARMACEUTICAL PRODUCT COMPLAINT [None]
